FAERS Safety Report 19239212 (Version 1)
Quarter: 2021Q2

REPORT INFORMATION
  Report Type: Spontaneous
  Country: DE (occurrence: DE)
  Receive Date: 20210510
  Receipt Date: 20210510
  Transmission Date: 20210717
  Serious: Yes (Hospitalization)
  Sender: FDA-Public Use
  Company Number: DE-AMGEN-DEUNI2021068019

PATIENT
  Age: 53 Year
  Sex: Female

DRUGS (15)
  1. CARBOPLATIN. [Suspect]
     Active Substance: CARBOPLATIN
     Indication: NON-SMALL CELL LUNG CANCER
     Dosage: ON 01/APR/2021, RECEIVED LAST DOSE OF CARBOPLATIN 5 MG/MIN/ML  PRIOR TO EVENT
     Route: 042
     Dates: start: 20210217
  2. BEVACIZUMAB. [Suspect]
     Active Substance: BEVACIZUMAB
     Indication: NON-SMALL CELL LUNG CANCER
     Dosage: ON 01/APR/2021, RECEIVED LAST DOSE OF BEVACIZUMAB 15 MG/KG PRIOR TO EVENT
     Route: 042
     Dates: start: 20210217
  3. VALSARTAN. [Concomitant]
     Active Substance: VALSARTAN
     Indication: HYPERTENSION
     Dosage: 80 MILLIGRAM, QD
     Route: 048
  4. ENOXAPARIN [Concomitant]
     Active Substance: ENOXAPARIN
     Dosage: 40 MILLIGRAM, QD
     Route: 058
     Dates: start: 20210309
  5. ADRENALIN (EPINEPHRINE) [Concomitant]
     Active Substance: EPINEPHRINE
     Dosage: UNK
     Dates: start: 20210311
  6. PREDNISOLON [PREDNISOLONE] [Concomitant]
     Active Substance: PREDNISOLONE
     Dosage: 250 MILLIGRAM
     Route: 042
     Dates: start: 20210311, end: 20210311
  7. PREDNISOLUT [PREDNISOLONE HEMISUCCINATE] [Concomitant]
     Dosage: 250 MILLIGRAM
     Route: 042
  8. CEFUROXIM [CEFUROXIME] [Concomitant]
     Active Substance: CEFUROXIME
     Dosage: 500 MILLIGRAM
     Route: 048
     Dates: start: 20210316
  9. ACICLOVIR [Concomitant]
     Active Substance: ACYCLOVIR
     Dosage: 800 MILLIGRAM
     Route: 048
     Dates: start: 20210215, end: 20210221
  10. ATEZOLIZUMAB. [Suspect]
     Active Substance: ATEZOLIZUMAB
     Indication: NON-SMALL CELL LUNG CANCER
     Dosage: ON 01/APR/2021, RECEIVED LAST DOSE OF ATEZOLIZUMAB 1200 MG PRIOR TO EVENT
     Route: 042
     Dates: start: 20210217
  11. PACLITAXEL ALBUMIN [Suspect]
     Active Substance: PACLITAXEL
     Indication: NON-SMALL CELL LUNG CANCER
     Dosage: ON 01/APR/2021, RECEIVED LAST DOSE OF PACLITAXEL 175 MG/M2 PRIOR TO EVENT
     Route: 042
  12. PANTOPRAZOL [PANTOPRAZOLE] [Concomitant]
     Active Substance: PANTOPRAZOLE
     Dosage: 40 MILLIGRAM
     Route: 048
     Dates: start: 20210408, end: 20210414
  13. GRANISETRON [Concomitant]
     Active Substance: GRANISETRON
     Dosage: 2 MILLIGRAM
     Route: 048
     Dates: start: 20210217
  14. DEXAMETHASON [DEXAMETHASONE] [Concomitant]
     Active Substance: DEXAMETHASONE
     Dosage: 8 MILLIGRAM
     Route: 048
     Dates: start: 20210218
  15. SUCRABEST [Concomitant]
     Active Substance: SUCRALFATE
     Dosage: 1.45 MILLIGRAM
     Route: 048
     Dates: start: 20210408, end: 20210414

REACTIONS (5)
  - Skin infection [Recovered/Resolved]
  - Skin infection [Recovered/Resolved]
  - Hypersensitivity [Recovered/Resolved]
  - Oesophagitis [Not Recovered/Not Resolved]
  - Cough [Recovered/Resolved]

NARRATIVE: CASE EVENT DATE: 20210311
